FAERS Safety Report 6908213-1 (Version None)
Quarter: 2010Q3

REPORT INFORMATION
  Report Type: 
  Country: None (occurrence: None)
  Receive Date: 20100805
  Receipt Date: 20100803
  Transmission Date: 20110219
  Serious: Yes (Hospitalization)
  Sender: FDA-Public Use
  Company Number: IT-BRISTOL-MYERS SQUIBB COMPANY-15165558

PATIENT
  Age: 69 Year
  Sex: Male

DRUGS (3)
  1. COUMADIN [Suspect]
     Indication: ARRHYTHMIA PROPHYLAXIS
     Dosage: 1DF=1 POSOLOGIC UNIT
     Dates: start: 20100604, end: 20100608
  2. CONGESCOR [Concomitant]
     Dosage: 1DF=2 POSOLOGIC UNITS;1.25MG ORAL TABS.
     Route: 048
  3. LORAZEPAM [Concomitant]
     Dosage: 1 MG ORAL TABS.
     Route: 048

REACTIONS (9)
  - ANAEMIA [None]
  - EROSIVE DUODENITIS [None]
  - GASTROINTESTINAL HAEMORRHAGE [None]
  - HAEMORRHAGIC EROSIVE GASTRITIS [None]
  - HEPATIC CIRRHOSIS [None]
  - MONOCLONAL GAMMOPATHY [None]
  - PORTAL HYPERTENSION [None]
  - SPLENOMEGALY [None]
  - VARICES OESOPHAGEAL [None]
